FAERS Safety Report 20697555 (Version 2)
Quarter: 2022Q2

REPORT INFORMATION
  Report Type: Spontaneous
  Country: IL (occurrence: None)
  Receive Date: 20220411
  Receipt Date: 20220413
  Transmission Date: 20220721
  Serious: Yes (Death, Life-Threatening, Hospitalization, Other)
  Sender: FDA-Public Use
  Company Number: 2022A145277

PATIENT
  Age: 82 Year
  Sex: Male

DRUGS (1)
  1. EVUSHELD [Suspect]
     Active Substance: CILGAVIMAB\TIXAGEVIMAB
     Indication: Immunodeficiency
     Route: 030

REACTIONS (3)
  - Myocardial infarction [Fatal]
  - Cerebrovascular accident [Fatal]
  - COVID-19 [Unknown]
